FAERS Safety Report 6383092-2 (Version None)
Quarter: 2009Q3

REPORT INFORMATION
  Report Type: 
  Country: None (occurrence: None)
  Receive Date: 20090928
  Receipt Date: 20090909
  Transmission Date: 20100115
  Serious: Yes (Hospitalization)
  Sender: FDA-Public Use
  Company Number: JPI-P-008531

PATIENT
  Sex: Male

DRUGS (2)
  1. XYREM           (500 MILLIGRAM/MILLILITERS) (SODIUM OXYBATE) [Suspect]
     Indication: DRUG USE FOR UNKNOWN INDICATION
     Dosage: 9 GM (4.5 GM, 2 IN 1 D), ORAL
     Route: 048
  2. MODAFINIL [Concomitant]

REACTIONS (2)
  - HOMICIDAL IDEATION [None]
  - IRRITABILITY [None]
